FAERS Safety Report 13739217 (Version 1)
Quarter: 2017Q3

REPORT INFORMATION
  Report Type: Other
  Country: None (occurrence: US)
  Receive Date: 20170710
  Receipt Date: 20170710
  Transmission Date: 20171127
  Serious: Yes (Other)
  Sender: FDA-Public Use
  Company Number: US-GUTHY-RENKER LLC-2023156

PATIENT
  Age: 14 Year
  Sex: Female

DRUGS (5)
  1. FLONASE [Concomitant]
     Active Substance: FLUTICASONE PROPIONATE
  2. PROACTIV SOLUTION RENEWING CLEANSER [Suspect]
     Active Substance: BENZOYL PEROXIDE
     Indication: ACNE
     Route: 061
     Dates: start: 20160217, end: 20160313
  3. PROACTIV REPAIRING TREATMENT [Suspect]
     Active Substance: BENZOYL PEROXIDE
     Route: 061
     Dates: start: 20160217, end: 20160313
  4. CLONIDINE. [Concomitant]
     Active Substance: CLONIDINE
  5. ALLERGY INJECTIONS, 2 ORAL ALLERGY MEDICATIONS, EYE DROPS, ECHINACEA [Concomitant]

REACTIONS (4)
  - Blister [None]
  - Throat tightness [Recovering/Resolving]
  - Pruritus [None]
  - Dyspnoea [None]

NARRATIVE: CASE EVENT DATE: 20160313
